FAERS Safety Report 7548058-5 (Version None)
Quarter: 2011Q2

REPORT INFORMATION
  Report Type: 
  Country: None (occurrence: None)
  Receive Date: 20110615
  Receipt Date: 20110601
  Transmission Date: 20111010
  Serious: Yes (Other)
  Sender: FDA-Public Use
  Company Number: US-ELI_LILLY_AND_COMPANY-US201106000665

PATIENT
  Sex: Female

DRUGS (4)
  1. VITAMIN D [Concomitant]
  2. CALCIUM CARBONATE [Concomitant]
  3. SPIRIVA [Concomitant]
  4. FORTEO [Suspect]
     Indication: OSTEOPOROSIS
     Dosage: 20 UG, QD
     Route: 065
     Dates: start: 20110401, end: 20110526

REACTIONS (1)
  - LYMPHOMA [None]
